FAERS Safety Report 23686907 (Version 1)
Quarter: 2024Q1

REPORT INFORMATION
  Report Type: Spontaneous
  Country: SK (occurrence: SK)
  Receive Date: 20240329
  Receipt Date: 20240329
  Transmission Date: 20240409
  Serious: Yes (Hospitalization)
  Sender: FDA-Public Use
  Company Number: None

PATIENT
  Age: 71 Year
  Sex: Male

DRUGS (12)
  1. CYCLOSPORINE [Interacting]
     Active Substance: CYCLOSPORINE
     Indication: Product used for unknown indication
     Dosage: UNK
     Route: 065
     Dates: start: 200603, end: 20070315
  2. ATORVASTATIN [Interacting]
     Active Substance: ATORVASTATIN
     Indication: Product used for unknown indication
     Dosage: UNK
     Route: 065
     Dates: start: 20070212
  3. CIPROFLOXACIN [Interacting]
     Active Substance: CIPROFLOXACIN
     Indication: Chronic obstructive pulmonary disease
     Dosage: UNK
     Route: 065
     Dates: start: 20070308
  4. CIPROFLOXACIN [Interacting]
     Active Substance: CIPROFLOXACIN
     Indication: Pyrexia
  5. CIPROFLOXACIN [Interacting]
     Active Substance: CIPROFLOXACIN
     Indication: Leukocytosis
  6. CLARITHROMYCIN [Interacting]
     Active Substance: CLARITHROMYCIN
     Indication: Chronic obstructive pulmonary disease
     Dosage: UNK
     Route: 065
     Dates: start: 200703
  7. CLARITHROMYCIN [Interacting]
     Active Substance: CLARITHROMYCIN
     Indication: Pyrexia
  8. CLARITHROMYCIN [Interacting]
     Active Substance: CLARITHROMYCIN
     Indication: Leukocytosis
  9. KETOCONAZOLE [Interacting]
     Active Substance: KETOCONAZOLE
     Indication: Chronic obstructive pulmonary disease
     Dosage: UNK
     Route: 065
     Dates: start: 20070308
  10. KETOCONAZOLE [Interacting]
     Active Substance: KETOCONAZOLE
     Indication: Pyrexia
  11. KETOCONAZOLE [Interacting]
     Active Substance: KETOCONAZOLE
     Indication: Leukocytosis
  12. CEFUROXIME SODIUM [Concomitant]
     Active Substance: CEFUROXIME SODIUM
     Indication: Chronic obstructive pulmonary disease
     Dosage: UNK
     Route: 065
     Dates: start: 20070308

REACTIONS (2)
  - Acute kidney injury [Unknown]
  - Drug interaction [Unknown]

NARRATIVE: CASE EVENT DATE: 20070101
